FAERS Safety Report 9519626 (Version 1)
Quarter: 2013Q3

REPORT INFORMATION
  Report Type: Spontaneous
  Country: GB (occurrence: GB)
  Receive Date: 20130912
  Receipt Date: 20130912
  Transmission Date: 20140515
  Serious: Yes (Life-Threatening, Hospitalization, Other)
  Sender: FDA-Public Use
  Company Number: GB-TEVA-431357ISR

PATIENT
  Age: 76 Year
  Sex: Female

DRUGS (4)
  1. TRIMETHOPRIM [Suspect]
     Indication: URINARY TRACT INFECTION
     Route: 048
     Dates: start: 20120209
  2. WARFARIN [Suspect]
     Indication: ATRIAL FIBRILLATION
     Dosage: AS PER INR. LONG TERM.
     Route: 048
  3. BISOPROLOL [Concomitant]
  4. SIMVASTATIN [Concomitant]
     Dosage: TAKEN AT NIGHT.

REACTIONS (1)
  - International normalised ratio increased [Recovered/Resolved]
